FAERS Safety Report 7853142 (Version 6)
Quarter: 2013Q4

REPORT INFORMATION
  Report Type: Spontaneous
  Country: US (occurrence: US)
  Receive Date: 20110311
  Receipt Date: 20131018
  Transmission Date: 20140711
  Serious: Yes (Hospitalization, Disabling, Other)
  Sender: FDA-Public Use
  Company Number: US-MERCK-1103USA00973

PATIENT
  Sex: Female

DRUGS (10)
  1. FOSAMAX [Suspect]
     Indication: OSTEOPOROSIS
     Dosage: 70 MG, QW
     Route: 048
     Dates: start: 20010109, end: 20080613
  2. FOSAMAX [Suspect]
     Indication: OSTEOPENIA
     Dosage: 35 MG, UNK
     Route: 048
  3. FOSAMAX [Suspect]
     Indication: OSTEOPOROSIS
     Dosage: 70 MG, UNK
     Route: 048
     Dates: start: 20090105, end: 20100716
  4. FOSAMAX [Suspect]
     Indication: OSTEOPENIA
  5. ALENDRONATE SODIUM [Suspect]
     Dosage: 70 MG, UNK
     Route: 048
  6. BONIVA [Suspect]
     Indication: OSTEOPOROSIS
     Dosage: 150 MG, UNK
     Route: 048
     Dates: start: 20080613, end: 20090105
  7. BONIVA [Suspect]
     Indication: OSTEOPENIA
  8. CALCIUM (UNSPECIFIED) [Concomitant]
     Dosage: UNK
  9. EFFEXOR [Concomitant]
     Indication: DEPRESSION
     Dosage: UNK
     Dates: start: 1999, end: 2001
  10. HORMONES (UNSPECIFIED) [Concomitant]
     Dosage: UNK
     Dates: start: 2000, end: 2006

REACTIONS (47)
  - Cholelithiasis [Unknown]
  - Granulomatous liver disease [Unknown]
  - Biliary tract disorder [Unknown]
  - Pneumobilia [Unknown]
  - Renal cyst [Unknown]
  - Oedema [Unknown]
  - Pain [Not Recovered/Not Resolved]
  - Sleep apnoea syndrome [Unknown]
  - Polymyalgia rheumatica [Unknown]
  - Migraine [Unknown]
  - Bacterial infection [Unknown]
  - Insomnia [Unknown]
  - Back pain [Unknown]
  - Gastrooesophageal reflux disease [Unknown]
  - Myalgia [Unknown]
  - Myositis [Unknown]
  - Malaise [Unknown]
  - Fatigue [Unknown]
  - Femur fracture [Recovered/Resolved]
  - Open reduction of fracture [Unknown]
  - Intramedullary rod insertion [Unknown]
  - Klebsiella bacteraemia [Recovering/Resolving]
  - Anaemia postoperative [Recovering/Resolving]
  - Bone density decreased [Unknown]
  - Meningitis [Unknown]
  - Appendicectomy [Unknown]
  - Carpal tunnel decompression [Unknown]
  - Bile duct stent insertion [Unknown]
  - Pancreatitis [Unknown]
  - Corneal transplant [Unknown]
  - Surgery [Unknown]
  - Femur fracture [Unknown]
  - Femur fracture [Recovering/Resolving]
  - Blood alkaline phosphatase increased [Recovering/Resolving]
  - Blood alkaline phosphatase increased [Unknown]
  - Liver function test abnormal [Unknown]
  - Duodenal stenosis [Unknown]
  - Hysterectomy [Unknown]
  - Temporal arteritis [Unknown]
  - Hypothyroidism [Unknown]
  - Skin lesion [Unknown]
  - Breast haematoma [Unknown]
  - Cholelithiasis [Unknown]
  - Liver function test abnormal [Unknown]
  - Injury [Unknown]
  - Haemorrhagic erosive gastritis [Unknown]
  - Sciatica [Unknown]
